FAERS Safety Report 26155900 (Version 2)
Quarter: 2025Q4

REPORT INFORMATION
  Report Type: Spontaneous
  Country: CN (occurrence: CN)
  Receive Date: 20251215
  Receipt Date: 20251222
  Transmission Date: 20260117
  Serious: Yes (Other)
  Sender: NOVARTIS
  Company Number: CN-002147023-NVSC2025CN190748

PATIENT
  Age: 67 Year
  Sex: Male

DRUGS (3)
  1. ENTRESTO [Suspect]
     Active Substance: SACUBITRIL\VALSARTAN
     Indication: Hypertension
     Dosage: 200 MG, QD (100 MG 2 TABLETS OF EACH DAY) (2 TABLETS PER DAY)
     Route: 048
     Dates: start: 202511, end: 202512
  2. ENTRESTO [Suspect]
     Active Substance: SACUBITRIL\VALSARTAN
     Dosage: 1 DOSAGE FORM, QD (1 TABLET PER DAY)
     Route: 048
  3. ASPIRIN [Concomitant]
     Active Substance: ASPIRIN
     Indication: Product used for unknown indication
     Dosage: UNK (WITH A USAGE DURATION OF AT LEAST TEN YEARS)
     Route: 048

REACTIONS (2)
  - Blood pressure decreased [Unknown]
  - Blood pressure systolic increased [Unknown]

NARRATIVE: CASE EVENT DATE: 20251201
